FAERS Safety Report 15961325 (Version 1)
Quarter: 2019Q1

REPORT INFORMATION
  Report Type: Report from Study
  Country: US (occurrence: US)
  Receive Date: 20190214
  Receipt Date: 20190214
  Transmission Date: 20190417
  Serious: Yes (Other)
  Sender: FDA-Public Use
  Company Number: US-ROCHE-2262834

PATIENT
  Sex: Male
  Weight: 57.2 kg

DRUGS (1)
  1. SOMATROPIN. [Suspect]
     Active Substance: SOMATROPIN
     Indication: HYPOPITUITARISM
     Route: 058

REACTIONS (3)
  - Orthostatic hypotension [Recovering/Resolving]
  - Hyperhidrosis [Recovering/Resolving]
  - Blindness [Unknown]
